FAERS Safety Report 5768746-0 (Version None)
Quarter: 2008Q2

REPORT INFORMATION
  Report Type: 
  Country: None (occurrence: None)
  Receive Date: 20080612
  Receipt Date: 20080611
  Transmission Date: 20081010
  Serious: Yes (Life-Threatening, Hospitalization, Disabling, Other)
  Sender: FDA-Public Use
  Company Number: JP-BOEHRINGER INGELHEIM GMBH, GERMANY-2008-BP-00972NB

PATIENT
  Sex: Female
  Weight: 61.2 kg

DRUGS (9)
  1. MICARDIS [Suspect]
     Indication: HYPERTENSION
     Route: 048
     Dates: start: 20061003, end: 20070902
  2. ITOROL [Concomitant]
     Route: 048
     Dates: start: 20060401
  3. ASPIRIN [Concomitant]
     Route: 048
     Dates: start: 20050901
  4. LANSOPRAZOLE [Concomitant]
     Indication: PROPHYLAXIS
     Route: 048
     Dates: start: 20060401
  5. TICLOPIDINE HCL [Concomitant]
     Route: 048
     Dates: start: 20060401
  6. PROMAC [Concomitant]
     Indication: PROPHYLAXIS
     Route: 048
     Dates: start: 20040201
  7. EUGLUCON [Concomitant]
     Route: 048
     Dates: start: 20040201
  8. BASEN [Concomitant]
     Route: 048
     Dates: start: 20040201
  9. CEFACLOR [Concomitant]
     Indication: PROPHYLAXIS
     Route: 048
     Dates: start: 20070713, end: 20070715

REACTIONS (8)
  - ANGINA PECTORIS [None]
  - ARTERIOSCLEROTIC GANGRENE [None]
  - CARDIAC FAILURE [None]
  - DEHYDRATION [None]
  - DIABETES MELLITUS [None]
  - DYSURIA [None]
  - RENAL IMPAIRMENT [None]
  - SEPSIS [None]
